FAERS Safety Report 4750045-7 (Version None)
Quarter: 2005Q3

REPORT INFORMATION
  Report Type: 
  Country: None (occurrence: None)
  Receive Date: 20050822
  Receipt Date: 20050808
  Transmission Date: 20060218
  Serious: Yes (Hospitalization)
  Sender: FDA-Public Use
  Company Number: DEU-2005-0001591

PATIENT
  Age: 75 Year
  Sex: Female
  Weight: 45 kg

DRUGS (3)
  1. OXYCODONE HCL [Suspect]
     Indication: BACK PAIN
     Dosage: 10 MG, BID, ORAL
     Route: 048
  2. IBUPROFEN [Concomitant]
  3. FERRO-SANOL B (FERROUS SULFATE, RIBOFLAVIN  SODIUM PHOSPHATE, PYRIDOXI [Concomitant]

REACTIONS (11)
  - ANOREXIA [None]
  - ASTHENIA [None]
  - DEPRESSED LEVEL OF CONSCIOUSNESS [None]
  - EPILEPSY [None]
  - GENERAL PHYSICAL HEALTH DETERIORATION [None]
  - MICTURITION URGENCY [None]
  - NAUSEA [None]
  - OVERDOSE [None]
  - POISONING [None]
  - SOMNOLENCE [None]
  - WEIGHT DECREASED [None]
